FAERS Safety Report 4763214-7 (Version None)
Quarter: 2005Q3

REPORT INFORMATION
  Report Type: 
  Country: None (occurrence: None)
  Receive Date: 20050902
  Receipt Date: 20050819
  Transmission Date: 20060218
  Serious: Yes (Hospitalization)
  Sender: FDA-Public Use
  Company Number: 2005BI015732

PATIENT
  Age: 32 Year
  Sex: Female

DRUGS (1)
  1. AVONEX [Suspect]
     Indication: MULTIPLE SCLEROSIS
     Dosage: 30 UG;QW;IM
     Route: 030
     Dates: start: 20030905, end: 20050309

REACTIONS (4)
  - INTERVERTEBRAL DISC PROTRUSION [None]
  - MENINGITIS [None]
  - SUICIDE ATTEMPT [None]
  - WHEELCHAIR USER [None]
